FAERS Safety Report 9217803 (Version 1)
Quarter: 2013Q2

REPORT INFORMATION
  Report Type: Report from Study
  Country: GR (occurrence: GR)
  Receive Date: 20130408
  Receipt Date: 20130408
  Transmission Date: 20140414
  Serious: Yes (Hospitalization, Other)
  Sender: FDA-Public Use
  Company Number: GR-PFIZER INC-2013108048

PATIENT
  Age: 64 Year
  Sex: Male

DRUGS (2)
  1. FLUOROURACIL [Suspect]
     Indication: HEAD AND NECK CANCER
     Dosage: 1000 MG/M2/DAY, DAYS 2-6, CYCLIC
  2. CISPLATIN [Concomitant]
     Indication: HEAD AND NECK CANCER
     Dosage: 100 MG/M2/DAY, DAY 1, CYCLIC

REACTIONS (1)
  - Acute myocardial infarction [Unknown]
